FAERS Safety Report 8014234-0 (Version None)
Quarter: 2011Q4

REPORT INFORMATION
  Report Type: 
  Country: None (occurrence: None)
  Receive Date: 20111229
  Receipt Date: 20111222
  Transmission Date: 20120403
  Serious: Yes (Other)
  Sender: FDA-Public Use
  Company Number: AR-GLAXOSMITHKLINE-A0959015A

PATIENT
  Age: 71 Year
  Sex: Male

DRUGS (1)
  1. AVODART [Suspect]
     Indication: PROSTATE CANCER
     Dosage: .5MG PER DAY
     Route: 065
     Dates: start: 20110301, end: 20110601

REACTIONS (7)
  - CUTANEOUS VASCULITIS [None]
  - BLOOD CREATINE PHOSPHOKINASE INCREASED [None]
  - RASH [None]
  - SKIN EXFOLIATION [None]
  - ERYTHEMA [None]
  - DERMATOMYOSITIS [None]
  - ALDOLASE INCREASED [None]
